FAERS Safety Report 14455488 (Version 2)
Quarter: 2018Q1

REPORT INFORMATION
  Report Type: Spontaneous
  Country: US (occurrence: US)
  Receive Date: 20180129
  Receipt Date: 20180130
  Transmission Date: 20180509
  Serious: Yes (Hospitalization)
  Sender: FDA-Public Use
  Company Number: US-CELGENEUS-USA-20180108597

PATIENT
  Age: 51 Year
  Sex: Female

DRUGS (3)
  1. POMALYST [Suspect]
     Active Substance: POMALIDOMIDE
     Indication: LEUKAEMIA
     Route: 048
     Dates: end: 20171025
  2. IBRANCE [Suspect]
     Active Substance: PALBOCICLIB
     Indication: LEUKAEMIA
     Dosage: 125 MILLIGRAM
     Route: 065
     Dates: start: 201710, end: 201711
  3. DEXAMETHASONE. [Suspect]
     Active Substance: DEXAMETHASONE
     Indication: STEROID THERAPY
     Dosage: 20 MILLIGRAM
     Route: 065
     Dates: start: 20170501, end: 201711

REACTIONS (2)
  - Drug ineffective [Unknown]
  - Proteinuria [Unknown]

NARRATIVE: CASE EVENT DATE: 20171031
